FAERS Safety Report 21602745 (Version 1)
Quarter: 2022Q4

REPORT INFORMATION
  Report Type: Spontaneous
  Country: US (occurrence: US)
  Receive Date: 20221116
  Receipt Date: 20221116
  Transmission Date: 20230112
  Serious: Yes (Other)
  Sender: FDA-Public Use
  Company Number: US-PFIZER INC-202201300323

PATIENT
  Age: 64 Year
  Sex: Female

DRUGS (9)
  1. IBRANCE [Suspect]
     Active Substance: PALBOCICLIB
     Dosage: 125 MG, CYCLIC (DAILY FOR 21 DAYS, 7 DAYS OFF)
     Dates: start: 20220912
  2. FULVESTRANT [Suspect]
     Active Substance: FULVESTRANT
     Dosage: UNK (250 MG/5ML )
  3. LOSARTAN POTASSIUM [Concomitant]
     Active Substance: LOSARTAN POTASSIUM
     Dosage: 50 MG
  4. XGEVA [Concomitant]
     Active Substance: DENOSUMAB
     Dosage: UNK (120MG/1.7 VIAL)
  5. FLUCELVAX QUAD [Concomitant]
     Dosage: UNK
  6. IMODIUM [Concomitant]
     Active Substance: LOPERAMIDE HYDROCHLORIDE
     Dosage: 2 MG
  7. VITAMIN B12 [Concomitant]
     Active Substance: CYANOCOBALAMIN
     Dosage: 2500 UG
  8. VITAMIN D NOS [Concomitant]
     Active Substance: VITAMIN D NOS
     Dosage: 10 UG
  9. CALCIUM [Concomitant]
     Active Substance: CALCIUM
     Dosage: 500 MG

REACTIONS (6)
  - Pulmonary oedema [Recovering/Resolving]
  - Platelet count abnormal [Recovering/Resolving]
  - Flatulence [Recovering/Resolving]
  - Hypertension [Recovering/Resolving]
  - Injection site pain [Recovering/Resolving]
  - Alopecia [Recovering/Resolving]
